FAERS Safety Report 9882246 (Version 1)
Quarter: 2014Q1

REPORT INFORMATION
  Report Type: Report from Study
  Country: GB (occurrence: GB)
  Receive Date: 20140207
  Receipt Date: 20140207
  Transmission Date: 20141002
  Serious: Yes (Death)
  Sender: FDA-Public Use
  Company Number: GB-ABBVIE-14P-167-1198029-00

PATIENT
  Sex: Female
  Weight: 95 kg

DRUGS (1)
  1. HUMIRA [Suspect]
     Indication: RHEUMATOID ARTHRITIS
     Route: 058
     Dates: start: 20050721

REACTIONS (5)
  - Multi-organ failure [Fatal]
  - Endocarditis [Fatal]
  - Aortic valve repair [Fatal]
  - Hypertension [Fatal]
  - Pulmonary embolism [Fatal]
